FAERS Safety Report 20475274 (Version 3)
Quarter: 2022Q1

REPORT INFORMATION
  Report Type: Spontaneous
  Country: FR (occurrence: FR)
  Receive Date: 20220215
  Receipt Date: 20220302
  Transmission Date: 20220423
  Serious: Yes (Life-Threatening, Other)
  Sender: FDA-Public Use
  Company Number: None

PATIENT
  Age: 72 Year
  Sex: Male
  Weight: 90 kg

DRUGS (4)
  1. OPDIVO [Suspect]
     Active Substance: NIVOLUMAB
     Indication: Renal cancer metastatic
     Dosage: UNK
     Route: 041
     Dates: start: 20201009, end: 20201209
  2. YERVOY [Suspect]
     Active Substance: IPILIMUMAB
     Indication: Renal cancer metastatic
     Dosage: UNK
     Route: 041
     Dates: start: 20201009, end: 20201209
  3. CABOMETYX [Suspect]
     Active Substance: CABOZANTINIB S-MALATE
     Indication: Renal cancer metastatic
     Route: 048
     Dates: start: 20210125
  4. XGEVA [Suspect]
     Active Substance: DENOSUMAB
     Indication: Metastases to bone
     Dosage: 120 MILLIGRAM
     Route: 058
     Dates: start: 20210125

REACTIONS (1)
  - Myocarditis [Recovering/Resolving]

NARRATIVE: CASE EVENT DATE: 20210202
